FAERS Safety Report 19415392 (Version 1)
Quarter: 2021Q2

REPORT INFORMATION
  Report Type: Spontaneous
  Country: US (occurrence: US)
  Receive Date: 20210614
  Receipt Date: 20210614
  Transmission Date: 20210717
  Serious: Yes (Other)
  Sender: FDA-Public Use
  Company Number: US-CMP PHARMA-2021CMP00009

PATIENT
  Age: 79 Year
  Sex: Male

DRUGS (2)
  1. TRIAMCINOLONE [Suspect]
     Active Substance: TRIAMCINOLONE
     Indication: CYSTOID MACULAR OEDEMA
     Dosage: INJECTED INTO BOTH EYES ONCE
     Route: 031
  2. TRIAMCINOLONE [Suspect]
     Active Substance: TRIAMCINOLONE
     Dosage: INJECTED INTO BOTH EYES ONCE, 3 MONTHS AFTER THE FIRST INJECTION
     Route: 031

REACTIONS (1)
  - Non-infectious endophthalmitis [Recovered/Resolved]
